FAERS Safety Report 10176647 (Version 1)
Quarter: 2014Q2

REPORT INFORMATION
  Report Type: Spontaneous
  Country: US (occurrence: US)
  Receive Date: 20140516
  Receipt Date: 20140516
  Transmission Date: 20141212
  Serious: Yes (Other)
  Sender: FDA-Public Use
  Company Number: US-FRI-1000067274

PATIENT
  Sex: Female

DRUGS (2)
  1. CELEXA [Suspect]
  2. LINEZOLID [Suspect]

REACTIONS (6)
  - Altered state of consciousness [Unknown]
  - Dysgeusia [Unknown]
  - Dysphagia [Unknown]
  - Unevaluable event [Unknown]
  - Speech disorder [Unknown]
  - Muscle spasms [Unknown]
